FAERS Safety Report 10216857 (Version 1)
Quarter: 2014Q2

REPORT INFORMATION
  Report Type: Spontaneous
  Country: GB (occurrence: GB)
  Receive Date: 20140604
  Receipt Date: 20140604
  Transmission Date: 20141212
  Serious: Yes (Disabling, Other)
  Sender: FDA-Public Use
  Company Number: GB-ACTAVIS-2014-11696

PATIENT
  Age: 52 Year
  Sex: Female
  Weight: 102 kg

DRUGS (5)
  1. QUETIAPINE FUMARATE (UNKNOWN) [Suspect]
     Indication: BIPOLAR DISORDER
     Dosage: 400 MG, UNK. STARTED AT 600MG THEN RANGED FROM 300 TO 400MG
     Route: 048
     Dates: end: 20140510
  2. QUETIAPINE FUMARATE (UNKNOWN) [Suspect]
     Dosage: 300 MG, UNK. STARTED AT 600MG THEN RANGED FROM 300 TO 400MG
     Route: 048
  3. QUETIAPINE FUMARATE (UNKNOWN) [Suspect]
     Dosage: 600 MG, UNK. STARTED AT 600 MG THEN RANGED FROM 300 TO 400 MG
     Route: 048
     Dates: start: 20101217
  4. CARBIMAZOLE [Concomitant]
     Indication: PRODUCT USED FOR UNKNOWN INDICATION
     Dosage: UNK
     Route: 065
  5. LITHIUM CARBONATE [Concomitant]
     Indication: PRODUCT USED FOR UNKNOWN INDICATION
     Dosage: UNK
     Route: 065

REACTIONS (10)
  - Paranoia [Recovering/Resolving]
  - Depression [Unknown]
  - Insomnia [Recovering/Resolving]
  - Panic reaction [Recovering/Resolving]
  - Choking sensation [Recovering/Resolving]
  - Arthralgia [Recovering/Resolving]
  - Tachycardia [Recovering/Resolving]
  - Joint stiffness [Recovering/Resolving]
  - Lethargy [Recovering/Resolving]
  - Withdrawal syndrome [Recovering/Resolving]
